FAERS Safety Report 9452853 (Version 3)
Quarter: 2013Q3

REPORT INFORMATION
  Report Type: Report from Study
  Country: US (occurrence: US)
  Receive Date: 20130812
  Receipt Date: 20130903
  Transmission Date: 20140515
  Serious: Yes (Hospitalization)
  Sender: FDA-Public Use
  Company Number: US-JNJFOC-20130805180

PATIENT
  Age: 18 Year
  Sex: Male
  Weight: 93.8 kg

DRUGS (20)
  1. REMICADE [Suspect]
     Indication: COLITIS
     Route: 042
     Dates: start: 20121116, end: 20121231
  2. 5-ASA [Concomitant]
     Route: 048
  3. PREDNISONE [Concomitant]
     Route: 065
  4. HYDROCORTISONE [Concomitant]
     Route: 065
  5. TACROLIMUS [Concomitant]
     Route: 065
  6. FERROUS SULFATE [Concomitant]
     Route: 065
  7. BACTRIM [Concomitant]
     Route: 065
  8. MULTIVITAMINS [Concomitant]
     Route: 065
  9. NEXIUM [Concomitant]
     Route: 065
  10. ZOFRAN [Concomitant]
     Route: 065
  11. ULTRAM [Concomitant]
     Route: 065
  12. ZANTAC [Concomitant]
     Route: 065
  13. IMODIUM [Concomitant]
     Route: 065
  14. METHOTREXATE [Concomitant]
     Route: 065
  15. CARAFATE [Concomitant]
     Route: 065
  16. FOLIC ACID [Concomitant]
     Route: 065
  17. DEXMEDETOMIDINE [Concomitant]
     Route: 065
  18. DILAUDID [Concomitant]
     Route: 065
  19. MIRALAX [Concomitant]
     Route: 065
  20. PROPOFOL [Concomitant]
     Route: 065

REACTIONS (1)
  - Colitis [Recovered/Resolved with Sequelae]
